FAERS Safety Report 25780811 (Version 2)
Quarter: 2025Q3

REPORT INFORMATION
  Report Type: Spontaneous
  Country: EU (occurrence: EU)
  Receive Date: 20250909
  Receipt Date: 20250930
  Transmission Date: 20251021
  Serious: Yes (Other)
  Sender: NOVARTIS
  Company Number: EU-002147023-NVSC2025AT126871

PATIENT
  Sex: Female

DRUGS (2)
  1. KESIMPTA [Suspect]
     Active Substance: OFATUMUMAB
     Indication: Multiple sclerosis
     Dosage: UNK, QW (ROUTE: INJECTION)
     Route: 065
     Dates: start: 202505
  2. KESIMPTA [Suspect]
     Active Substance: OFATUMUMAB
     Dosage: UNK, QMO (ROUTE: INJECTION)
     Route: 065

REACTIONS (18)
  - Lyme disease [Unknown]
  - Urinary tract infection [Not Recovered/Not Resolved]
  - Urinary retention [Not Recovered/Not Resolved]
  - Pollakiuria [Not Recovered/Not Resolved]
  - Body temperature increased [Recovering/Resolving]
  - Flank pain [Not Recovered/Not Resolved]
  - Urine abnormality [Not Recovered/Not Resolved]
  - Dermatitis [Not Recovered/Not Resolved]
  - Arthropod bite [Unknown]
  - Erysipelas [Unknown]
  - Skin reaction [Not Recovered/Not Resolved]
  - Sensory disturbance [Unknown]
  - Fatigue [Recovering/Resolving]
  - Weight decreased [Unknown]
  - Headache [Recovered/Resolved]
  - Somnolence [Unknown]
  - Sensitive skin [Unknown]
  - Infection [Unknown]

NARRATIVE: CASE EVENT DATE: 20250101
